FAERS Safety Report 9459060 (Version 2)
Quarter: 2013Q3

REPORT INFORMATION
  Report Type: Spontaneous
  Country: US (occurrence: US)
  Receive Date: 20130814
  Receipt Date: 20130826
  Transmission Date: 20140515
  Serious: Yes (Other)
  Sender: FDA-Public Use
  Company Number: US-TEVA-425143USA

PATIENT
  Sex: Female

DRUGS (1)
  1. QVAR [Suspect]
     Route: 055

REACTIONS (4)
  - Contusion [Unknown]
  - Contusion [Unknown]
  - Periorbital contusion [Unknown]
  - Off label use [Unknown]
